FAERS Safety Report 9198825 (Version 2)
Quarter: 2013Q2

REPORT INFORMATION
  Report Type: Spontaneous
  Country: US (occurrence: US)
  Receive Date: 20130329
  Receipt Date: 20130418
  Transmission Date: 20140414
  Serious: Yes (Life-Threatening, Other)
  Sender: FDA-Public Use
  Company Number: US-009507513-1303USA011299

PATIENT
  Age: 14 Year
  Sex: Female

DRUGS (2)
  1. METHYLPREDNISOLONE SODIUM SUCCINATE [Suspect]
     Indication: DRUG REACTION WITH EOSINOPHILIA AND SYSTEMIC SYMPTOMS
     Dosage: 250 MG, QD
     Route: 042
  2. CLINDAMYCIN [Concomitant]

REACTIONS (3)
  - Cardiac arrest [Recovering/Resolving]
  - Drug ineffective [Unknown]
  - Therapeutic response decreased [Unknown]
